FAERS Safety Report 13107373 (Version 1)
Quarter: 2017Q1

REPORT INFORMATION
  Report Type: Report from Study
  Country: JM (occurrence: JM)
  Receive Date: 20170112
  Receipt Date: 20170112
  Transmission Date: 20170428
  Serious: Yes (Hospitalization)
  Sender: FDA-Public Use
  Company Number: JM-ROCHE-1875795

PATIENT
  Sex: Female

DRUGS (1)
  1. MABTHERA [Suspect]
     Active Substance: RITUXIMAB
     Indication: RHEUMATOID ARTHRITIS
     Dosage: FIRST DOSE
     Route: 042
     Dates: start: 20161228

REACTIONS (5)
  - Chest discomfort [Unknown]
  - Blood pressure increased [Recovered/Resolved with Sequelae]
  - Hypoaesthesia oral [Unknown]
  - Cough [Unknown]
  - Pruritus [Recovered/Resolved with Sequelae]

NARRATIVE: CASE EVENT DATE: 20161228
